FAERS Safety Report 5170789-5 (Version None)
Quarter: 2006Q4

REPORT INFORMATION
  Report Type: 
  Country: None (occurrence: None)
  Receive Date: 20061205
  Receipt Date: 20061205
  Transmission Date: 20070319
  Serious: Yes (Hospitalization)
  Sender: FDA-Public Use
  Company Number: None

PATIENT
  Sex: Male
  Weight: 97 kg

DRUGS (3)
  1. ELOXATIN [Suspect]
     Dosage: 190 MG
     Dates: end: 20061130
  2. FLUOROURACIL [Suspect]
     Dosage: 6175 MG
     Dates: end: 20061130
  3. LEUCOVORIN CALCIUM [Suspect]
     Dosage: 875 MG
     Dates: end: 20061130

REACTIONS (6)
  - BLOOD PRESSURE DECREASED [None]
  - INTERNATIONAL NORMALISED RATIO ABNORMAL [None]
  - LOSS OF CONSCIOUSNESS [None]
  - PALPITATIONS [None]
  - PULMONARY EMBOLISM [None]
  - REFUSAL OF TREATMENT BY PATIENT [None]
